FAERS Safety Report 25109628 (Version 3)
Quarter: 2025Q2

REPORT INFORMATION
  Report Type: Spontaneous
  Country: US (occurrence: US)
  Receive Date: 20250323
  Receipt Date: 20250416
  Transmission Date: 20250717
  Serious: No
  Sender: BAUSCH AND LOMB
  Company Number: US-BAUSCHBL-2025BNL004581

PATIENT
  Age: 77 Year
  Sex: Male
  Weight: 95 kg

DRUGS (4)
  1. MIEBO [Suspect]
     Active Substance: PERFLUOROHEXYLOCTANE
     Indication: Dry eye
     Route: 047
     Dates: start: 202501, end: 202501
  2. MIEBO [Suspect]
     Active Substance: PERFLUOROHEXYLOCTANE
     Route: 047
     Dates: start: 202501
  3. XIIDRA [Suspect]
     Active Substance: LIFITEGRAST
     Indication: Dry eye
     Route: 047
     Dates: start: 202203, end: 202403
  4. XIIDRA [Suspect]
     Active Substance: LIFITEGRAST
     Route: 047
     Dates: start: 20250312, end: 202503

REACTIONS (8)
  - Eye irritation [Unknown]
  - Lacrimation increased [Unknown]
  - Vision blurred [Unknown]
  - Drug effect less than expected [Unknown]
  - Product residue present [Unknown]
  - Product complaint [Unknown]
  - Intentional product use issue [Unknown]
  - Intentional product misuse [Unknown]

NARRATIVE: CASE EVENT DATE: 20250101
